FAERS Safety Report 19962367 (Version 1)
Quarter: 2021Q4

REPORT INFORMATION
  Report Type: Spontaneous
  Country: JP (occurrence: JP)
  Receive Date: 20211018
  Receipt Date: 20211018
  Transmission Date: 20220303
  Serious: Yes (Other)
  Sender: FDA-Public Use
  Company Number: JP-ORION CORPORATION ORION PHARMA-ENT 2021-0117

PATIENT

DRUGS (1)
  1. COMTAN [Suspect]
     Active Substance: ENTACAPONE
     Indication: Product used for unknown indication
     Dosage: STRENGTH: 100 MG
     Route: 048

REACTIONS (2)
  - Delirium [Unknown]
  - Dementia [Unknown]
